FAERS Safety Report 24013444 (Version 1)
Quarter: 2024Q2

REPORT INFORMATION
  Report Type: Spontaneous
  Country: DE (occurrence: DE)
  Receive Date: 20240626
  Receipt Date: 20240626
  Transmission Date: 20240715
  Serious: Yes (Hospitalization, Other)
  Sender: FDA-Public Use
  Company Number: DE-AUROBINDO-AUR-APL-2014-08110

PATIENT
  Age: 42 Year
  Sex: Male

DRUGS (3)
  1. CLOPIDOGREL [Suspect]
     Active Substance: CLOPIDOGREL BISULFATE
     Indication: Antiplatelet therapy
     Dosage: 600 MG, UNK
     Route: 065
  2. ASPIRIN [Suspect]
     Active Substance: ASPIRIN
     Indication: Cerebral ischaemia
     Dosage: 500 MG, UNK
     Route: 065
  3. ASPIRIN [Suspect]
     Active Substance: ASPIRIN
     Indication: Antiplatelet therapy

REACTIONS (8)
  - Cerebral haemorrhage [Unknown]
  - Hemiparesis [Unknown]
  - Hydrocephalus [Unknown]
  - Platelet count decreased [Unknown]
  - Intraventricular haemorrhage [Unknown]
  - Therapy non-responder [Unknown]
  - Drug resistance [Unknown]
  - Drug ineffective [Unknown]
